FAERS Safety Report 4994344-2 (Version None)
Quarter: 2006Q2

REPORT INFORMATION
  Report Type: 
  Country: None (occurrence: None)
  Receive Date: 20060503
  Receipt Date: 20060419
  Transmission Date: 20061013
  Serious: Yes (Other)
  Sender: FDA-Public Use
  Company Number: GB200604001642

PATIENT
  Age: 23 Year
  Sex: Female
  Weight: 59 kg

DRUGS (12)
  1. XIGRIS [Suspect]
     Indication: SEPTIC SHOCK
     Dosage: SEE IMAGE, INTRAVENOUS
     Route: 042
     Dates: start: 20060407, end: 20060408
  2. XIGRIS [Suspect]
     Indication: SEPTIC SHOCK
     Dosage: SEE IMAGE, INTRAVENOUS
     Route: 042
     Dates: start: 20060408, end: 20060410
  3. VANCOMYCIN [Concomitant]
  4. ABELCET [Concomitant]
  5. ACYCLOVIR [Concomitant]
  6. MEROPENEM (MEROPENEM) [Concomitant]
  7. HYDROCORTISONE [Concomitant]
  8. NORADRENALINE (NOREPINEPHRINE) [Concomitant]
  9. MORPHINE [Concomitant]
  10. MIDAZOLAM HCL [Concomitant]
  11. RANITIDINE [Concomitant]
  12. METOCLOPRAMIDE [Concomitant]

REACTIONS (7)
  - ACTIVATED PARTIAL THROMBOPLASTIN TIME PROLONGED [None]
  - ALANINE AMINOTRANSFERASE INCREASED [None]
  - BLOOD ALKALINE PHOSPHATASE INCREASED [None]
  - BLOOD BILIRUBIN INCREASED [None]
  - GAMMA-GLUTAMYLTRANSFERASE INCREASED [None]
  - PANCYTOPENIA [None]
  - PUNCTURE SITE HAEMORRHAGE [None]
